FAERS Safety Report 7943557-6 (Version None)
Quarter: 2011Q4

REPORT INFORMATION
  Report Type: 
  Country: None (occurrence: None)
  Receive Date: 20111128
  Receipt Date: 20111118
  Transmission Date: 20120403
  Serious: Yes (Hospitalization)
  Sender: FDA-Public Use
  Company Number: PHHY2011GB101491

PATIENT
  Sex: Female

DRUGS (2)
  1. ZUCLOPENTHIXOL [Suspect]
  2. HALOPERIDOL [Suspect]

REACTIONS (2)
  - HYPOTONIA [None]
  - HYPOTHERMIA [None]
